FAERS Safety Report 12136287 (Version 1)
Quarter: 2016Q1

REPORT INFORMATION
  Report Type: Spontaneous
  Country: US (occurrence: None)
  Receive Date: 20160301
  Receipt Date: 20160301
  Transmission Date: 20160526
  Serious: Yes (Hospitalization, Disabling)
  Sender: FDA-Public Use
  Company Number: None

PATIENT
  Age: 39 Year
  Sex: Female
  Weight: 99.79 kg

DRUGS (4)
  1. PAXIL [Concomitant]
     Active Substance: PAROXETINE HYDROCHLORIDE
  2. ADDERALL [Concomitant]
     Active Substance: AMPHETAMINE ASPARTATE\AMPHETAMINE SULFATE\DEXTROAMPHETAMINE SACCHARATE\DEXTROAMPHETAMINE SULFATE
  3. XANAX [Concomitant]
     Active Substance: ALPRAZOLAM
  4. PREDNISONE. [Suspect]
     Active Substance: PREDNISONE
     Indication: PNEUMONIA
     Dosage: 3 TABLETS ONCE DAILY TAKEN BY MOUTH
     Route: 048
     Dates: start: 20160223, end: 20160225

REACTIONS (7)
  - Disorientation [None]
  - Substance-induced psychotic disorder [None]
  - Confusional state [None]
  - Dizziness [None]
  - Impaired driving ability [None]
  - Hysterical psychosis [None]
  - Paranoia [None]

NARRATIVE: CASE EVENT DATE: 20160223
